FAERS Safety Report 23995263 (Version 2)
Quarter: 2024Q3

REPORT INFORMATION
  Report Type: Spontaneous
  Country: JP (occurrence: JP)
  Receive Date: 20240620
  Receipt Date: 20240916
  Transmission Date: 20241016
  Serious: Yes (Death, Hospitalization)
  Sender: PFIZER
  Company Number: JP-PFIZER INC-PV202400077987

PATIENT
  Age: 67 Year
  Sex: Female
  Weight: 44.5 kg

DRUGS (21)
  1. PACLITAXEL [Suspect]
     Active Substance: PACLITAXEL
     Indication: Ovarian cancer recurrent
     Dosage: 108 MG, 1X/DAY
     Route: 042
     Dates: start: 20231129, end: 20231129
  2. IMFINZI [Suspect]
     Active Substance: DURVALUMAB
     Indication: Lung carcinoma cell type unspecified recurrent
     Dosage: 480 MG, 1X/DAY
     Route: 042
     Dates: start: 20220615, end: 20230612
  3. ANAMORELIN HYDROCHLORIDE [Suspect]
     Active Substance: ANAMORELIN HYDROCHLORIDE
     Indication: Cachexia
     Dosage: 100 MG, 1X/DAY, WAKE UP TIME
     Route: 048
     Dates: start: 20231115, end: 20231129
  4. DEXAMETHASONE SODIUM PHOSPHATE [Concomitant]
     Active Substance: DEXAMETHASONE PHOSPHATE\DEXAMETHASONE SODIUM PHOSPHATE
     Dosage: 6.6 MG/2ML, UNKNOWN
     Dates: start: 20231129, end: 20231129
  5. GASTER [Concomitant]
     Active Substance: FAMOTIDINE
     Dosage: UNK
     Dates: start: 20231129, end: 20231129
  6. CHLORPHENIRAMINE MALEATE [Concomitant]
     Active Substance: CHLORPHENIRAMINE MALEATE
     Dosage: UNK
     Dates: start: 20231129, end: 20231129
  7. GRANISETRON [Concomitant]
     Active Substance: GRANISETRON
     Dosage: 1 MG/50ML, UNKNOWN
     Route: 041
     Dates: start: 20231129, end: 20231129
  8. IPRAGLIFLOZIN L-PROLINE [Concomitant]
     Active Substance: IPRAGLIFLOZIN L-PROLINE
     Dosage: 1 DF, 1X/DAY, AFTER BREAKFAST
     Route: 048
     Dates: start: 20180625
  9. PITAVASTATIN CALCIUM [Concomitant]
     Active Substance: PITAVASTATIN CALCIUM
     Dosage: 2 MG, 1X/DAY, AFTER BREAKFAST
     Route: 048
     Dates: start: 20180625
  10. LAFUTIDINE [Concomitant]
     Active Substance: LAFUTIDINE
     Dosage: 10 MG, 2X/DAY, AFTER BREAKFAST AND BEFORE BEDTIME
     Route: 048
     Dates: start: 20180731
  11. LOXOPROFEN [Concomitant]
     Active Substance: LOXOPROFEN
     Dosage: 60 MG, 3X/DAY, AFTER EVERY MEAL
     Route: 048
     Dates: start: 20180731
  12. CALONAL [Concomitant]
     Active Substance: ACETAMINOPHEN
     Dosage: 400 MG, 3X/DAY, AFTER EVERY MEAL
     Route: 048
     Dates: start: 20210930
  13. CALONAL [Concomitant]
     Active Substance: ACETAMINOPHEN
     Dosage: 400 MG, 4X/DAY, AFTER EVERY MEAL AND BEFORE BEDTIME
     Route: 048
     Dates: start: 20220607
  14. CILNIDIPINE [Concomitant]
     Active Substance: CILNIDIPINE
     Dosage: 5 MG, 1X/DAY, AFTER DINNER
     Route: 048
     Dates: start: 20231102
  15. LAFUTIDINE [Concomitant]
     Active Substance: LAFUTIDINE
     Dosage: 10 MG, 2X/DAY, AFTER BREAKFAST AND BEFORE BEDTIME
     Route: 048
     Dates: start: 20211002
  16. MAGNESIUM OXIDE [Concomitant]
     Active Substance: MAGNESIUM OXIDE
     Dosage: 330 MG, 3X/DAY, AFTER EVERY MEAL
     Route: 048
     Dates: start: 20180802
  17. CLONAZEPAM [Concomitant]
     Active Substance: CLONAZEPAM
     Dosage: 0.5 MG, 1X/DAY, BEFORE BEDTIME
     Route: 048
     Dates: start: 20230612
  18. ENSURE [CARBOHYDRATES NOS;FATS NOS;MINERALS NOS;PROTEINS NOS;VITAMINS [Concomitant]
     Dosage: 250KCAL/250ML, 2XDAY, AFTER BREAKFAST AND DINNER
     Dates: start: 20231115
  19. SENNOSIDES [Concomitant]
     Active Substance: SENNOSIDES
     Indication: Constipation
     Dosage: 24 MG, AS NEEDED
     Route: 048
     Dates: start: 20180802
  20. LORAZEPAM [Concomitant]
     Active Substance: LORAZEPAM
     Indication: Nausea
     Dosage: 1.0 MG, AS NEEDED
     Route: 048
     Dates: start: 20231115
  21. PRIMPERAN [Concomitant]
     Active Substance: METOCLOPRAMIDE HYDROCHLORIDE
     Indication: Nausea
     Dosage: 5 MG, AS NEEDED
     Route: 048
     Dates: start: 20231115

REACTIONS (1)
  - Stress cardiomyopathy [Fatal]

NARRATIVE: CASE EVENT DATE: 20231129
